FAERS Safety Report 10875040 (Version 1)
Quarter: 2015Q1

REPORT INFORMATION
  Report Type: Spontaneous
  Country: US (occurrence: US)
  Receive Date: 20150227
  Receipt Date: 20150227
  Transmission Date: 20150721
  Serious: No
  Sender: FDA-Public Use
  Company Number: US-ASTRAZENECA-2015SE16611

PATIENT
  Age: 18 Year
  Sex: Male
  Weight: 104.3 kg

DRUGS (1)
  1. SEROQUEL [Suspect]
     Active Substance: QUETIAPINE FUMARATE
     Indication: AUTISM
     Dosage: 100 MG IN THE MORNING, 100 MG IN THE AFTERNOON, 50 MG AT 5PM AND 200 MG AT NIGHT
     Route: 048

REACTIONS (2)
  - Intentional product misuse [Not Recovered/Not Resolved]
  - Weight decreased [Unknown]
